FAERS Safety Report 6065728-9 (Version None)
Quarter: 2009Q1

REPORT INFORMATION
  Report Type: 
  Country: None (occurrence: None)
  Receive Date: 20090202
  Receipt Date: 20090116
  Transmission Date: 20090719
  Serious: Yes (Death)
  Sender: FDA-Public Use
  Company Number: 2009S1000118

PATIENT
  Age: 61 Year
  Sex: Female

DRUGS (8)
  1. ROXICODONE [Suspect]
     Dosage: PO
     Route: 048
     Dates: end: 20070101
  2. ACETAMINOPHEN AND CODEINE PHOSPHATE [Suspect]
     Dosage: PO
     Route: 048
     Dates: end: 20070101
  3. ESCITALOPRAM [Suspect]
     Dosage: PO
     Route: 048
     Dates: end: 20070101
  4. LEVOTHYROXINE SODIUM [Suspect]
     Dosage: PO
     Route: 048
     Dates: end: 20070101
  5. THIAZIDE [Suspect]
     Dosage: PO
     Route: 048
     Dates: end: 20070101
  6. ACETAMINOPHEN/DIPHENHYDRAMINE [Suspect]
     Dosage: PO
     Route: 048
     Dates: end: 20070101
  7. ESTRADIOL [Suspect]
     Dosage: PO
     Route: 048
     Dates: end: 20070101
  8. PROGESTIN INJ [Suspect]
     Dosage: PO
     Route: 048
     Dates: end: 20070101

REACTIONS (1)
  - COMPLETED SUICIDE [None]
